FAERS Safety Report 7129326-8 (Version None)
Quarter: 2010Q4

REPORT INFORMATION
  Report Type: 
  Country: None (occurrence: None)
  Receive Date: 20101130
  Receipt Date: 20101118
  Transmission Date: 20110411
  Serious: No
  Sender: FDA-Public Use
  Company Number: US-PFIZER INC-2010152884

PATIENT
  Sex: Male
  Weight: 78.912 kg

DRUGS (7)
  1. LYRICA [Suspect]
     Indication: PAIN
     Dosage: 150 MG, DAILY
     Route: 048
     Dates: start: 20101019
  2. TRAZODONE [Concomitant]
     Indication: SLEEP DISORDER
     Dosage: 2 TABLETS, 1X/DAILY
  3. NEXIUM [Concomitant]
     Indication: OESOPHAGEAL INJURY
     Dosage: UNK
  4. NABUMETONE [Concomitant]
     Dosage: UNK
  5. MIRAPEX [Concomitant]
     Dosage: UNK
  6. HYDROCHLOROTHIAZIDE [Concomitant]
     Dosage: UNK
  7. SIMVASTATIN [Concomitant]
     Dosage: UNK

REACTIONS (1)
  - LABORATORY TEST ABNORMAL [None]
